FAERS Safety Report 17071465 (Version 2)
Quarter: 2019Q4

REPORT INFORMATION
  Report Type: Spontaneous
  Country: US (occurrence: US)
  Receive Date: 20191125
  Receipt Date: 20191202
  Transmission Date: 20200122
  Serious: No
  Sender: FDA-Public Use
  Company Number: US-PFIZER INC-2019503214

PATIENT
  Age: 48 Year
  Sex: Female
  Weight: 87.53 kg

DRUGS (2)
  1. CHANTIX [Suspect]
     Active Substance: VARENICLINE TARTRATE
     Dosage: 5 MG, 1X/DAY
     Route: 048
     Dates: start: 20191116
  2. CHANTIX [Suspect]
     Active Substance: VARENICLINE TARTRATE
     Indication: SMOKING CESSATION THERAPY
     Dosage: UNK
     Route: 048
     Dates: end: 2018

REACTIONS (5)
  - Blister [Not Recovered/Not Resolved]
  - Overdose [Unknown]
  - Rash [Not Recovered/Not Resolved]
  - Eczema [Unknown]
  - Rash macular [Unknown]

NARRATIVE: CASE EVENT DATE: 20191116
